FAERS Safety Report 4397273-0 (Version None)
Quarter: 2004Q2

REPORT INFORMATION
  Report Type: 
  Country: None (occurrence: None)
  Receive Date: 20040621
  Receipt Date: 20040223
  Transmission Date: 20050107
  Serious: Yes (Death)
  Sender: FDA-Public Use
  Company Number: USA-2004-0013283

PATIENT
  Age: 40 Year
  Sex: Female

DRUGS (4)
  1. OXYCONTIN [Suspect]
  2. CAFFEINE (CAFFEINE) [Suspect]
  3. METHADONE HCL [Suspect]
  4. COCAINE (COCAINE) [Suspect]

REACTIONS (2)
  - ACCIDENTAL OVERDOSE [None]
  - MULTIPLE DRUG OVERDOSE [None]
